FAERS Safety Report 17867412 (Version 1)
Quarter: 2020Q2

REPORT INFORMATION
  Report Type: Spontaneous
  Country: US (occurrence: US)
  Receive Date: 20200605
  Receipt Date: 20200605
  Transmission Date: 20200714
  Serious: Yes (Death, Other)
  Sender: FDA-Public Use
  Company Number: US-GLAXOSMITHKLINE-US2020093974

PATIENT
  Age: 70 Year

DRUGS (1)
  1. RANITIDINE. [Suspect]
     Active Substance: RANITIDINE
     Dates: end: 20050715

REACTIONS (3)
  - Lung neoplasm malignant [Unknown]
  - Bladder cancer [Unknown]
  - Neoplasm malignant [Fatal]
